FAERS Safety Report 5997906-9 (Version None)
Quarter: 2008Q4

REPORT INFORMATION
  Report Type: 
  Country: None (occurrence: None)
  Receive Date: 20081211
  Receipt Date: 20081201
  Transmission Date: 20090506
  Serious: Yes (Hospitalization, Other)
  Sender: FDA-Public Use
  Company Number: 08H-163-0315281-00

PATIENT
  Age: 4 Year
  Sex: Female
  Weight: 36 kg

DRUGS (7)
  1. HALOTHANE [Suspect]
     Indication: INDUCTION AND MAINTENANCE OF ANAESTHESIA
     Dosage: INHALATION
  2. MIDAZOLAM HCL [Concomitant]
  3. OXYGEN (OXYGEN) [Concomitant]
  4. ACETAMINOPHEN WITH CODEINE (GALENIC/PARACETAMOL/CODEINE/) [Concomitant]
  5. BECLOMETHASONE DIPROPIONATE [Concomitant]
  6. ALBUTEROL [Concomitant]
  7. ANTIBIOTICS (ANTIBIOTICS) [Concomitant]

REACTIONS (25)
  - ACUTE HEPATIC FAILURE [None]
  - ALPHA 1 FOETOPROTEIN INCREASED [None]
  - ANTIBODY TEST POSITIVE [None]
  - ASTHMA [None]
  - BLOOD PRESSURE DIASTOLIC DECREASED [None]
  - BODY TEMPERATURE INCREASED [None]
  - CHOLESTASIS [None]
  - COAGULOPATHY [None]
  - CONDITION AGGRAVATED [None]
  - DRUG HYPERSENSITIVITY [None]
  - EOSINOPHILIA [None]
  - GALLBLADDER DISORDER [None]
  - HEART RATE INCREASED [None]
  - HEPATIC ENCEPHALOPATHY [None]
  - HEPATITIS [None]
  - LIVER INJURY [None]
  - OBESITY [None]
  - PLEURAL EFFUSION [None]
  - PULMONARY OEDEMA [None]
  - RASH ERYTHEMATOUS [None]
  - RASH MACULO-PAPULAR [None]
  - RENAL FAILURE [None]
  - RENAL TUBULAR NECROSIS [None]
  - URTICARIA [None]
  - VIRAL INFECTION [None]
